FAERS Safety Report 4940792-6 (Version None)
Quarter: 2006Q1

REPORT INFORMATION
  Report Type: 
  Country: None (occurrence: None)
  Receive Date: 20060307
  Receipt Date: 20060222
  Transmission Date: 20060701
  Serious: Yes (Death)
  Sender: FDA-Public Use
  Company Number: RENA-11664

PATIENT
  Age: 58 Year
  Sex: Female
  Weight: 38.5 kg

DRUGS (2)
  1. PHOSBLOCK 250 MG TABLETS [Suspect]
     Indication: HYPERPHOSPHATAEMIA
     Dosage: 1.5 G DAILY PO
     Route: 048
     Dates: start: 20030810
  2. PHOSBLOCK 250 MG TABLETS [Suspect]
     Indication: HYPERPHOSPHATAEMIA
     Dosage: 3 G DAILY PO
     Route: 048

REACTIONS (3)
  - CARDIO-RESPIRATORY ARREST [None]
  - SUDDEN DEATH [None]
  - VOMITING [None]
